FAERS Safety Report 4319042-X (Version None)
Quarter: 2004Q1

REPORT INFORMATION
  Report Type: 
  Country: None (occurrence: None)
  Receive Date: 20040318
  Receipt Date: 20040318
  Transmission Date: 20041129
  Serious: Yes (Hospitalization)
  Sender: FDA-Public Use
  Company Number: None

PATIENT
  Age: 73 Year
  Sex: Male
  Weight: 68.9467 kg

DRUGS (16)
  1. PROCRIT 40000 ORTHO-BIOTECH [Suspect]
     Indication: ANAEMIA
     Dosage: 40000UNITS WEEKLY SUBCUTANEOUS
     Route: 058
     Dates: start: 20031229, end: 20040211
  2. PROCRIT 40000 ORTHO-BIOTECH [Suspect]
     Indication: CHEMOTHERAPY
     Dosage: 40000UNITS WEEKLY SUBCUTANEOUS
     Route: 058
     Dates: start: 20031229, end: 20040211
  3. COUMADIN [Concomitant]
  4. COREG [Concomitant]
  5. DIGOXIN [Concomitant]
  6. COZAAR [Concomitant]
  7. QUINAPRIL HCL [Concomitant]
  8. FLOMAX [Concomitant]
  9. PROTONIX [Concomitant]
  10. LASIX [Concomitant]
  11. LIPITOR [Concomitant]
  12. LACTULOSE [Concomitant]
  13. HYDROXYCHLOROQUINE [Concomitant]
  14. PREDNISONE [Concomitant]
  15. SYNTHROID [Concomitant]
  16. AMBIEN [Concomitant]

REACTIONS (4)
  - DISEASE PROGRESSION [None]
  - DISSEMINATED INTRAVASCULAR COAGULATION [None]
  - LUNG INFECTION PSEUDOMONAL [None]
  - NEUTROPENIC SEPSIS [None]
